FAERS Safety Report 4386606-7 (Version None)
Quarter: 2004Q2

REPORT INFORMATION
  Report Type: 
  Country: None (occurrence: None)
  Receive Date: 20040629
  Receipt Date: 20040419
  Transmission Date: 20050107
  Serious: Yes (Hospitalization)
  Sender: FDA-Public Use
  Company Number: ES-GLAXOSMITHKLINE-B0330723A

PATIENT
  Age: 63 Year
  Sex: Female

DRUGS (6)
  1. AVANDIA [Suspect]
     Dosage: 8MG PER DAY
     Route: 048
     Dates: start: 20040115, end: 20040413
  2. METFORMIN [Concomitant]
     Dosage: 1700MG PER DAY
     Route: 048
     Dates: start: 19990101
  3. PRAVASTATIN [Concomitant]
     Dosage: 20MG PER DAY
     Route: 048
  4. CAPTOPRIL [Concomitant]
     Dosage: 50MG PER DAY
     Route: 048
  5. ASPIRIN [Concomitant]
     Route: 048
  6. NIFEDIPINE [Concomitant]
     Route: 048

REACTIONS (1)
  - ANAEMIA [None]
